FAERS Safety Report 8838382 (Version 1)
Quarter: 2012Q4

REPORT INFORMATION
  Report Type: 
  Country: GB (occurrence: GB)
  Receive Date: 20121012
  Receipt Date: 20121012
  Transmission Date: 20130627
  Serious: Yes (Congenital Anomaly, Other)
  Sender: FDA-Public Use
  Company Number: GB-PFIZER INC-2012252691

PATIENT

DRUGS (3)
  1. GABAPENTIN [Suspect]
     Route: 064
  2. LEVETIRACETAM [Suspect]
     Route: 064
  3. TEGRETOL [Suspect]
     Dosage: 800 mg,daily
     Route: 064

REACTIONS (2)
  - Maternal exposure timing unspecified [Unknown]
  - Talipes [Unknown]
